FAERS Safety Report 5140513-0 (Version None)
Quarter: 2006Q4

REPORT INFORMATION
  Report Type: 
  Country: None (occurrence: None)
  Receive Date: 20061025
  Receipt Date: 20061016
  Transmission Date: 20070319
  Serious: Yes (Death)
  Sender: FDA-Public Use
  Company Number: MEDI-0005035

PATIENT
  Age: 5 Month
  Sex: Female
  Weight: 3.97 kg

DRUGS (1)
  1. SYNAGIS [Suspect]
     Dosage: 60 MG, INTRAMUSCULAR
     Route: 030
     Dates: start: 20061002, end: 20061002

REACTIONS (2)
  - ASPIRATION [None]
  - CARDIO-RESPIRATORY ARREST [None]
